FAERS Safety Report 9125681 (Version 1)
Quarter: 2013Q1

REPORT INFORMATION
  Report Type: Spontaneous
  Country: CA (occurrence: CA)
  Receive Date: 20130227
  Receipt Date: 20130227
  Transmission Date: 20140127
  Serious: Yes (Other)
  Sender: FDA-Public Use
  Company Number: CA-WATSON-2013-03154

PATIENT
  Sex: Male

DRUGS (3)
  1. ETOPOSIDE [Suspect]
     Indication: OVARIAN GERM CELL TERATOMA STAGE I
     Dosage: UNK, UNKNOWN
     Route: 064
  2. CISPLATIN [Suspect]
     Indication: OVARIAN GERM CELL TERATOMA STAGE I
     Dosage: UNK, UNKNOWN
     Route: 064
  3. BLEOMYCIN [Suspect]
     Indication: OVARIAN GERM CELL TERATOMA STAGE I
     Dosage: UNK, UNKNOWN
     Route: 064

REACTIONS (3)
  - Intussusception [Recovered/Resolved]
  - Foetal exposure during pregnancy [Unknown]
  - Maternal drugs affecting foetus [None]
